FAERS Safety Report 25371459 (Version 2)
Quarter: 2025Q3

REPORT INFORMATION
  Report Type: Spontaneous
  Country: US (occurrence: US)
  Receive Date: 20250529
  Receipt Date: 20250704
  Transmission Date: 20251021
  Serious: No
  Sender: MERCK SHARP & DOHME LLC
  Company Number: US-009507513-2287154

PATIENT
  Sex: Female
  Weight: 57.606 kg

DRUGS (36)
  1. WINREVAIR [Suspect]
     Active Substance: SOTATERCEPT-CSRK
     Dates: start: 20250504
  2. WINREVAIR [Suspect]
     Active Substance: SOTATERCEPT-CSRK
     Dates: start: 2025
  3. WINREVAIR [Suspect]
     Active Substance: SOTATERCEPT-CSRK
  4. WINREVAIR [Suspect]
     Active Substance: SOTATERCEPT-CSRK
  5. REMODULIN [Suspect]
     Active Substance: TREPROSTINIL
     Indication: Pulmonary arterial hypertension
     Route: 058
     Dates: start: 20241126
  6. ALBUTEROL\IPRATROPIUM [Concomitant]
     Active Substance: ALBUTEROL\IPRATROPIUM
  7. FUROSEMIDE [Concomitant]
     Active Substance: FUROSEMIDE
  8. VITAMIN B12 [Concomitant]
     Active Substance: CYANOCOBALAMIN
  9. CALCIUM [Concomitant]
     Active Substance: CALCIUM
  10. OMEPRAZOLE [Concomitant]
     Active Substance: OMEPRAZOLE
  11. ALBUTEROL SULFATE [Concomitant]
     Active Substance: ALBUTEROL SULFATE
  12. MIRTAZAPINE [Concomitant]
     Active Substance: MIRTAZAPINE
  13. BREZTRI [Concomitant]
     Active Substance: BUDESONIDE\FORMOTEROL\GLYCOPYRROLATE
  14. MINERALS\VITAMINS [Concomitant]
     Active Substance: MINERALS\VITAMINS
  15. KETAMINE HYDROCHLORIDE [Concomitant]
     Active Substance: KETAMINE HYDROCHLORIDE
  16. LECITHIN [Concomitant]
     Active Substance: LECITHIN
  17. CALCIUM CARBONATE [Concomitant]
     Active Substance: CALCIUM CARBONATE
  18. SILDENAFIL [Concomitant]
     Active Substance: SILDENAFIL
  19. LOPERAMIDE [Concomitant]
     Active Substance: LOPERAMIDE
  20. VITAMIN D2 [Concomitant]
     Active Substance: ERGOCALCIFEROL
  21. CLONIDINE [Concomitant]
     Active Substance: CLONIDINE
  22. KETOPROFEN [Concomitant]
     Active Substance: KETOPROFEN
  23. ALPRAZOLAM [Concomitant]
     Active Substance: ALPRAZOLAM
  24. SPIRONOLACTONE [Concomitant]
     Active Substance: SPIRONOLACTONE
  25. OXYGEN [Concomitant]
     Active Substance: OXYGEN
  26. METFORMIN HYDROCHLORIDE [Concomitant]
     Active Substance: METFORMIN HYDROCHLORIDE
  27. CITALOPRAM HYDROBROMIDE [Concomitant]
     Active Substance: CITALOPRAM HYDROBROMIDE
  28. TUMS [Concomitant]
     Active Substance: CALCIUM CARBONATE
  29. LIDOCAINE HYDROCHLORIDE [Concomitant]
     Active Substance: LIDOCAINE HYDROCHLORIDE
  30. FARXIGA [Concomitant]
     Active Substance: DAPAGLIFLOZIN PROPANEDIOL
  31. AMITRIPTYLINE HYDROCHLORIDE [Concomitant]
     Active Substance: AMITRIPTYLINE HYDROCHLORIDE
  32. GABAPENTIN [Concomitant]
     Active Substance: GABAPENTIN
  33. POLOXAMER [Concomitant]
     Active Substance: POLOXAMER
  34. POTASSIUM CHLORIDE [Concomitant]
     Active Substance: POTASSIUM CHLORIDE
  35. ASPIRIN [Concomitant]
     Active Substance: ASPIRIN
  36. PRAVASTATIN SODIUM [Concomitant]
     Active Substance: PRAVASTATIN SODIUM

REACTIONS (2)
  - Drug eruption [Recovered/Resolved]
  - Urticaria [Recovered/Resolved]

NARRATIVE: CASE EVENT DATE: 20250101
